FAERS Safety Report 25629777 (Version 1)
Quarter: 2025Q3

REPORT INFORMATION
  Report Type: Spontaneous
  Country: US (occurrence: US)
  Receive Date: 20250731
  Receipt Date: 20250731
  Transmission Date: 20251021
  Serious: No
  Sender: BIOMARIN
  Company Number: US-BIOMARINAP-US-2025-167711

PATIENT
  Age: 3 Month
  Sex: Female
  Weight: 3 kg

DRUGS (1)
  1. VOXZOGO [Suspect]
     Active Substance: VOSORITIDE
     Indication: Osteochondrodysplasia
     Dosage: , QD
     Dates: start: 20250711

REACTIONS (1)
  - Pallor [Recovered/Resolved]
